FAERS Safety Report 16430442 (Version 2)
Quarter: 2020Q1

REPORT INFORMATION
  Report Type: Spontaneous
  Country: CN (occurrence: CN)
  Receive Date: 20190614
  Receipt Date: 20200312
  Transmission Date: 20200409
  Serious: Yes (Other)
  Sender: FDA-Public Use
  Company Number: CN-ROCHE-2334690

PATIENT
  Age: 65 Year
  Sex: Female
  Weight: 55 kg

DRUGS (19)
  1. VEMURAFENIB. [Concomitant]
     Active Substance: VEMURAFENIB
     Indication: COLON CANCER
     Dosage: FROM DAY 1 TO DAY 14
     Route: 048
     Dates: start: 20190312, end: 20190919
  2. AVASTIN [Suspect]
     Active Substance: BEVACIZUMAB
     Indication: METASTASES TO LIVER
  3. XELODA [Concomitant]
     Active Substance: CAPECITABINE
     Indication: INVASIVE DUCTAL BREAST CARCINOMA
     Dosage: EARLY 1000MG AND 1500MG LATE; DAY1-14
     Route: 048
     Dates: start: 20180823, end: 20181102
  4. VEMURAFENIB. [Concomitant]
     Active Substance: VEMURAFENIB
     Indication: INVASIVE DUCTAL BREAST CARCINOMA
     Route: 065
     Dates: start: 20191014
  5. AVASTIN [Suspect]
     Active Substance: BEVACIZUMAB
     Indication: INVASIVE DUCTAL BREAST CARCINOMA
     Dosage: DAY1
     Route: 065
     Dates: start: 20180823, end: 20181102
  6. LETROZOLE. [Concomitant]
     Active Substance: LETROZOLE
     Indication: PRODUCT USED FOR UNKNOWN INDICATION
     Route: 048
     Dates: start: 20190704
  7. OXALIPLATIN. [Suspect]
     Active Substance: OXALIPLATIN
     Indication: INVASIVE DUCTAL BREAST CARCINOMA
     Dosage: DAY1
     Route: 065
     Dates: start: 20180823, end: 20181102
  8. XELODA [Concomitant]
     Active Substance: CAPECITABINE
     Indication: COLON CANCER
     Dosage: DAY1-14,ONCE PER 3WEEKS
     Route: 048
     Dates: start: 20180529, end: 20180802
  9. XELODA [Concomitant]
     Active Substance: CAPECITABINE
     Indication: METASTASES TO LIVER
     Dosage: DAY1-14; 1500MG EARLY AND LATE
     Route: 048
     Dates: start: 20190121
  10. CETUXIMAB. [Concomitant]
     Active Substance: CETUXIMAB
     Indication: COLON CANCER
     Dosage: ON DAY 1
     Route: 065
     Dates: start: 20190312, end: 20190919
  11. AVASTIN [Suspect]
     Active Substance: BEVACIZUMAB
     Indication: COLON CANCER
     Dosage: DAY1
     Route: 065
     Dates: start: 20180529, end: 20180802
  12. IRINOTECAN [Concomitant]
     Active Substance: IRINOTECAN
     Indication: COLON CANCER
     Dosage: ON DAY 1
     Route: 065
     Dates: start: 20190312, end: 20190919
  13. IRINOTECAN [Concomitant]
     Active Substance: IRINOTECAN
     Indication: METASTASES TO LIVER
  14. VEMURAFENIB. [Concomitant]
     Active Substance: VEMURAFENIB
     Indication: METASTASES TO LIVER
  15. IRINOTECAN [Concomitant]
     Active Substance: IRINOTECAN
     Indication: INVASIVE DUCTAL BREAST CARCINOMA
  16. OXALIPLATIN. [Suspect]
     Active Substance: OXALIPLATIN
     Indication: COLON CANCER
     Dosage: DAY1
     Route: 065
     Dates: start: 20180529, end: 20180802
  17. OXALIPLATIN. [Suspect]
     Active Substance: OXALIPLATIN
     Indication: METASTASES TO LIVER
  18. CETUXIMAB. [Concomitant]
     Active Substance: CETUXIMAB
     Indication: METASTASES TO LIVER
  19. CETUXIMAB. [Concomitant]
     Active Substance: CETUXIMAB
     Indication: INVASIVE DUCTAL BREAST CARCINOMA
     Route: 065
     Dates: start: 20191014

REACTIONS (10)
  - Postoperative wound infection [Unknown]
  - Paraesthesia [Unknown]
  - Hypoproteinaemia [Unknown]
  - Platelet count decreased [Unknown]
  - Granulocyte count decreased [Unknown]
  - Nausea [Unknown]
  - Abdominal wall oedema [Unknown]
  - Ascites [Unknown]
  - Abdominal abscess [Unknown]
  - Peritoneal disorder [Unknown]

NARRATIVE: CASE EVENT DATE: 2019
